FAERS Safety Report 4679822-8 (Version None)
Quarter: 2005Q2

REPORT INFORMATION
  Report Type: 
  Country: None (occurrence: None)
  Receive Date: 20050531
  Receipt Date: 20050512
  Transmission Date: 20051028
  Serious: Yes (Life-Threatening, Hospitalization)
  Sender: FDA-Public Use
  Company Number: WAES 0505NOR00015

PATIENT
  Age: 59 Year
  Sex: Male

DRUGS (12)
  1. VIOXX [Suspect]
     Indication: RHEUMATOID ARTHRITIS
     Dosage: 25 MG/DAILY/PO
     Route: 048
     Dates: start: 20030728, end: 20040415
  2. TAB 0663-BLINDED THERAPY [Suspect]
     Indication: RHEUMATOID ARTHRITIS
     Dosage: PO
     Route: 048
     Dates: start: 20030320, end: 20041203
  3. TAB BLINDED THERAPY [Suspect]
     Indication: RHEUMATOID ARTHRITIS
     Dosage: PO
     Route: 048
     Dates: start: 20030320, end: 20041203
  4. ACETAMINOPHEN [Concomitant]
  5. BENDROFLUMETHIAZIDE [Concomitant]
  6. CIPROFLOXACIN [Concomitant]
  7. FOLIC ACID [Concomitant]
  8. METOPROLOL [Concomitant]
  9. METOPROLOL TARTRATE [Concomitant]
  10. METRONIDAZOLE [Concomitant]
  11. PREDNISONE [Concomitant]
  12. RISEDRONATE SODIUM [Concomitant]

REACTIONS (18)
  - ALANINE AMINOTRANSFERASE INCREASED [None]
  - ASPARTATE AMINOTRANSFERASE INCREASED [None]
  - BLOOD ALBUMIN DECREASED [None]
  - BLOOD CREATININE INCREASED [None]
  - BLOOD GLUCOSE INCREASED [None]
  - BLOOD SODIUM DECREASED [None]
  - BLOOD THYROID STIMULATING HORMONE INCREASED [None]
  - C-REACTIVE PROTEIN INCREASED [None]
  - CARDIOMEGALY [None]
  - DIARRHOEA [None]
  - ELECTROCARDIOGRAM Q WAVE ABNORMAL [None]
  - ELECTROCARDIOGRAM ST SEGMENT ELEVATION [None]
  - HAEMOGLOBIN INCREASED [None]
  - HYPOTENSION [None]
  - MYOCARDIAL INFARCTION [None]
  - RED BLOOD CELL SEDIMENTATION RATE INCREASED [None]
  - VOMITING [None]
  - WHITE BLOOD CELL COUNT INCREASED [None]
